FAERS Safety Report 5897304-2 (Version None)
Quarter: 2008Q3

REPORT INFORMATION
  Report Type: 
  Country: None (occurrence: None)
  Receive Date: 20080905
  Receipt Date: 20080529
  Transmission Date: 20090109
  Serious: Yes (Hospitalization)
  Sender: FDA-Public Use
  Company Number: LUP-0299

PATIENT
  Age: 86 Year
  Sex: Male

DRUGS (23)
  1. SERTRALINE HCL [Suspect]
     Indication: DRUG USE FOR UNKNOWN INDICATION
     Dosage: 75 MG QD PO
     Route: 048
  2. SIMVASTATIN [Concomitant]
  3. ASPIRIN [Concomitant]
  4. CLOPIDOGREL [Concomitant]
  5. FLUNISOLIDE [Concomitant]
  6. SALBUTAMOL (SALBUTAMOL) [Concomitant]
  7. IPRATROPIUM BROMIDE [Concomitant]
  8. MOMETASONE FUROATE [Concomitant]
  9. DONEZEPIL (DONEZEPIL) [Concomitant]
  10. CYPROHEPTADINE HCL [Concomitant]
  11. FAMOTIDINE [Concomitant]
  12. FUROSEMIDE [Concomitant]
  13. ISOSORBIDE MONONITRATE [Concomitant]
  14. LISINOPRIL [Concomitant]
  15. MAGNESIUM GLUCONATE (MAGNESIUM GLUCONATE) [Concomitant]
  16. METOCLOPRAMIDE [Concomitant]
  17. METOPROLOL TARTRATE [Concomitant]
  18. NITROGLYCERIN [Concomitant]
  19. MODAFINIL [Concomitant]
  20. LEVETIRACETAM [Concomitant]
  21. INSULIN SUSPENSION ISOPHANE (ISOPHANE INSULIN) [Concomitant]
  22. INSULIN ASPART (INSULIN ASPART) [Concomitant]
  23. .. [Concomitant]

REACTIONS (3)
  - ANOREXIA [None]
  - DEHYDRATION [None]
  - NAUSEA [None]
